FAERS Safety Report 4926033-4 (Version None)
Quarter: 2006Q1

REPORT INFORMATION
  Report Type: 
  Country: None (occurrence: None)
  Receive Date: 20060228
  Receipt Date: 20050729
  Transmission Date: 20060701
  Serious: No
  Sender: FDA-Public Use
  Company Number: US-GLAXOSMITHKLINE-A0568300A

PATIENT
  Age: 55 Year
  Sex: Female
  Weight: 94.5 kg

DRUGS (8)
  1. LAMICTAL [Suspect]
     Dosage: 150MG TWICE PER DAY
     Route: 048
     Dates: start: 20050104
  2. SYNTHROID [Concomitant]
  3. PREMARIN [Concomitant]
  4. MULTI-VITAMIN [Concomitant]
  5. FIBERCON [Concomitant]
  6. HAIR, NAIL + SKIN VITAMIN [Concomitant]
  7. OMEGA-3 [Concomitant]
  8. VITAMIN E [Concomitant]

REACTIONS (5)
  - ABNORMAL DREAMS [None]
  - NOCTURIA [None]
  - SLEEP TALKING [None]
  - THERAPEUTIC RESPONSE UNEXPECTED [None]
  - WEIGHT DECREASED [None]
